FAERS Safety Report 12330272 (Version 2)
Quarter: 2018Q1

REPORT INFORMATION
  Report Type: Spontaneous
  Country: DE (occurrence: DE)
  Receive Date: 20160504
  Receipt Date: 20180227
  Transmission Date: 20180508
  Serious: Yes (Other)
  Sender: FDA-Public Use
  Company Number: DE-WEST-WARD PHARMACEUTICALS CORP.-DE-H14001-16-00669

PATIENT
  Age: 38 Year

DRUGS (4)
  1. SUFENTANIL [Suspect]
     Active Substance: SUFENTANIL
     Indication: EPIDURAL ANALGESIA
     Route: 008
  2. ROPIVACAINE [Suspect]
     Active Substance: ROPIVACAINE
     Indication: EPIDURAL ANALGESIA
     Route: 008
  3. SUFENTANIL [Suspect]
     Active Substance: SUFENTANIL
     Route: 008
  4. BUPIVACAINE. [Suspect]
     Active Substance: BUPIVACAINE
     Indication: EPIDURAL ANALGESIA
     Route: 008

REACTIONS (6)
  - Lacrimation increased [Recovered/Resolved]
  - Temperature perception test abnormal [Recovered/Resolved]
  - Off label use [Recovered/Resolved]
  - Horner^s syndrome [Recovered/Resolved]
  - Hemiparesis [Recovered/Resolved]
  - Hypoglossal nerve paresis [Recovered/Resolved]
